FAERS Safety Report 9678944 (Version 1)
Quarter: 2013Q4

REPORT INFORMATION
  Report Type: Spontaneous
  Country: US (occurrence: None)
  Receive Date: 20131107
  Receipt Date: 20131107
  Transmission Date: 20140711
  Serious: Yes (Disabling, Other)
  Sender: FDA-Public Use
  Company Number: ACO_38492_2013

PATIENT
  Age: 43 Year
  Sex: Female

DRUGS (29)
  1. MAGNESIUM OXIDE (MAGNESIUM OXIDE) [Concomitant]
  2. METHYLPHENYDATE (METHYLPHENIDATE HYDROCHLORIDE) [Concomitant]
  3. MUPIROCIN (MUPIROCIN) [Concomitant]
  4. NITROFURANTOIN MONOHYDRATE/MACROCRYSTALS (NITROFURANTOIN MONOHYDRATE) [Concomitant]
  5. NITROGLYCERIN (GLYCERYL TRINITRATE) [Concomitant]
  6. NYSTOP (NYSTATIN) [Concomitant]
  7. OMEPRAZOLE (OMEPRAZOLE) [Concomitant]
  8. OXYBUTYNIN CHLORIDE (OXYBUTYNIN HYDROCHLORIDE) [Concomitant]
  9. POTASSIUM  CHLORIDE (POTASSIUM CHLORIDE) [Concomitant]
  10. PREDNISONE (PREDNISONE) [Concomitant]
  11. USTELL (HYOSCYAMINE SULFATE, METHENAMINE, METHYLTHIONINIUM CHLORIDE, PHENYL SALICYLATE, SODIUM PHOSPHATE MONOBASIC) [Concomitant]
  12. VITAMIN D3 (COLECALCIFEROL) [Concomitant]
  13. WARFARIN SODIUM (WARFARIN SODIUM) [Concomitant]
  14. ZONISAMIDE (ZONISAMIDE) [Concomitant]
  15. ZYRTEC (CETIRIZINE HYDROCHLORIDE) [Concomitant]
  16. AMPYRA [Suspect]
     Indication: MULTIPLE SCLEROSIS
     Route: 048
     Dates: start: 201010
  17. ATENOLOL (ATENOLOL) [Concomitant]
  18. AVONEX (INTERFERON BETA-1A) [Concomitant]
  19. BACLOFEN (BACLOFEN) [Concomitant]
  20. BENEFIBER (CYAMOPSIS TETRAGONALOBA GUM) [Concomitant]
  21. CRANBERRY (CRANBERRY) [Concomitant]
  22. CYMBALTA (DULOXETINE HYDROCHLORIDE) [Concomitant]
  23. MULTIVITAMINS (ASCORBIC ACID, ERGOCALCIFEROL, FOLIC ACID, NOCOTINAMIDE, PANTHENOL, RETINOL, RIBOFLAVIN, THIAMINE HYDROCHLORIDE) [Concomitant]
  24. DICYCLOMINE (DICYCLOVERINE HYDROCHLORIDE) [Concomitant]
  25. DULCOLAX (BISACODYL) [Concomitant]
  26. ERYTHROMYCIN ETHYLSUCCINATE (ERYTHROMYCIN ETHYLSUCCINATE) [Concomitant]
  27. ESTRACE VAGINAL (ESTRADIOL) [Concomitant]
  28. ESTRADIOL (ESTRADIOL VALERATE) [Concomitant]
  29. FUROSEMIDE (FUROSEMIDE) [Concomitant]

REACTIONS (9)
  - Intervertebral disc displacement [None]
  - Paraplegia [None]
  - Peripheral nerve lesion [None]
  - Contusion [None]
  - Calculus urinary [None]
  - Rhinitis allergic [None]
  - Nasopharyngitis [None]
  - Dizziness [None]
  - Mass [None]
